FAERS Safety Report 10038100 (Version 1)
Quarter: 2014Q1

REPORT INFORMATION
  Report Type: Spontaneous
  Country: US (occurrence: None)
  Receive Date: 20140306
  Receipt Date: 20140306
  Transmission Date: 20141002
  Serious: Yes (Hospitalization, Other)
  Sender: FDA-Public Use
  Company Number: 163-21880-13082872

PATIENT
  Age: 65 Year
  Sex: Male
  Weight: 61.2 kg

DRUGS (6)
  1. REVLIMID [Suspect]
     Indication: PLASMA CELL MYELOMA
     Dosage: 25 MG, 21 IN 21 D, PO?
     Route: 048
     Dates: start: 201209
  2. WARFARIN (WARFARIN) (UNKNOWN) [Concomitant]
  3. DULCOLAX (BISACODYL) (UNKNOWN) [Concomitant]
  4. MORPHINE SULFATE ER (MORPHINE SULFATE) (UNKNOWN) [Concomitant]
  5. PROMETHAZINE HCL (PROMETHAZINE HYDROCHLORIDE) (UNKNOWN) [Concomitant]
  6. DEXAMETHASONE (DEXAMETHASONE) (UNKNOWN) [Concomitant]

REACTIONS (2)
  - Pyrexia [None]
  - Deep vein thrombosis [None]
